FAERS Safety Report 11127263 (Version 2)
Quarter: 2015Q4

REPORT INFORMATION
  Report Type: Spontaneous
  Country: US (occurrence: US)
  Receive Date: 20150521
  Receipt Date: 20151109
  Transmission Date: 20160304
  Serious: Yes (Hospitalization)
  Sender: FDA-Public Use
  Company Number: US-INVENTIA-000047

PATIENT
  Age: 70 Year
  Sex: Male

DRUGS (1)
  1. METFORMIN [Suspect]
     Active Substance: METFORMIN HYDROCHLORIDE
     Indication: TYPE 2 DIABETES MELLITUS

REACTIONS (9)
  - Acute kidney injury [Unknown]
  - Product use issue [Unknown]
  - Chest pain [None]
  - Drug level above therapeutic [None]
  - Blood pressure systolic increased [None]
  - Lactic acidosis [Recovered/Resolved]
  - Contraindicated drug administered [None]
  - Dyspnoea [None]
  - Blood glucose increased [None]
